FAERS Safety Report 6651200-1 (Version None)
Quarter: 2010Q1

REPORT INFORMATION
  Report Type: 
  Country: None (occurrence: None)
  Receive Date: 20100325
  Receipt Date: 20100311
  Transmission Date: 20100710
  Serious: No
  Sender: FDA-Public Use
  Company Number: US-JNJFOC-20100303799

PATIENT
  Sex: Female
  Weight: 95.26 kg

DRUGS (9)
  1. FENTANYL-100 [Suspect]
     Indication: PAIN IN EXTREMITY
     Route: 062
  2. FENTANYL-100 [Suspect]
     Indication: MUSCULOSKELETAL PAIN
     Route: 062
  3. FENTANYL-100 [Suspect]
     Indication: BACK PAIN
     Route: 062
  4. GABAPENTIN [Concomitant]
     Indication: NEURALGIA
     Route: 048
  5. TRAZODONE HCL [Concomitant]
     Indication: SLEEP DISORDER
     Route: 048
  6. METFORMIN HCL [Concomitant]
     Indication: DIABETES MELLITUS
     Route: 048
  7. FUROSEMIDE [Concomitant]
     Indication: DIURETIC THERAPY
     Route: 048
  8. VICODIN [Concomitant]
     Indication: BREAKTHROUGH PAIN
     Route: 048
  9. CYMBALTA [Concomitant]
     Indication: DEPRESSION
     Route: 048

REACTIONS (3)
  - INADEQUATE ANALGESIA [None]
  - INCORRECT DRUG ADMINISTRATION DURATION [None]
  - THERAPEUTIC RESPONSE DECREASED [None]
